FAERS Safety Report 25738616 (Version 2)
Quarter: 2025Q4

REPORT INFORMATION
  Report Type: Spontaneous
  Country: US (occurrence: US)
  Receive Date: 20250829
  Receipt Date: 20251122
  Transmission Date: 20260118
  Serious: No
  Sender: MDD OPERATIONS
  Company Number: US-002147023-MDD202506-002287

PATIENT
  Age: 71 Year
  Sex: Male
  Weight: 73.48 kg

DRUGS (24)
  1. ONAPGO [Suspect]
     Active Substance: APOMORPHINE HYDROCHLORIDE
     Indication: Parkinson^s disease
     Route: 058
  2. ONAPGO [Suspect]
     Active Substance: APOMORPHINE HYDROCHLORIDE
     Indication: Dyskinesia
     Dates: start: 202506
  3. ONAPGO [Suspect]
     Active Substance: APOMORPHINE HYDROCHLORIDE
     Indication: On and off phenomenon
     Dosage: 98MG/20ML
     Dates: start: 20250630
  4. ONAPGO [Suspect]
     Active Substance: APOMORPHINE HYDROCHLORIDE
     Dosage: 4.9ML
     Route: 058
  5. ONAPGO [Suspect]
     Active Substance: APOMORPHINE HYDROCHLORIDE
     Dates: start: 20250709
  6. ONAPGO [Suspect]
     Active Substance: APOMORPHINE HYDROCHLORIDE
     Dates: start: 20250712
  7. ONAPGO [Suspect]
     Active Substance: APOMORPHINE HYDROCHLORIDE
     Dates: start: 20250716
  8. ONAPGO [Suspect]
     Active Substance: APOMORPHINE HYDROCHLORIDE
  9. ONAPGO [Suspect]
     Active Substance: APOMORPHINE HYDROCHLORIDE
     Dosage: 3.5MG PER HOUR
  10. ONAPGO [Suspect]
     Active Substance: APOMORPHINE HYDROCHLORIDE
     Dosage: 4MG PER HOUR
  11. ONAPGO [Suspect]
     Active Substance: APOMORPHINE HYDROCHLORIDE
     Dosage: 3MG PER HOUR
  12. SCOPOLAMINE [Suspect]
     Active Substance: SCOPOLAMINE
     Indication: Motion sickness
     Dosage: NOT PROVIDED
  13. LITHIUM [Concomitant]
     Active Substance: LITHIUM
  14. CAPLYTA [Concomitant]
     Active Substance: LUMATEPERONE
  15. LAMOTRIGINE [Concomitant]
     Active Substance: LAMOTRIGINE
  16. GABAPENTIN [Concomitant]
     Active Substance: GABAPENTIN
  17. METFORMIN [Concomitant]
     Active Substance: METFORMIN HYDROCHLORIDE
  18. FARXIGA [Concomitant]
     Active Substance: DAPAGLIFLOZIN PROPANEDIOL
  19. OZEMPIC [Concomitant]
     Active Substance: SEMAGLUTIDE
     Route: 030
  20. LIPITOR [Concomitant]
     Active Substance: ATORVASTATIN CALCIUM
  21. PANTOPRAZOLE [Concomitant]
     Active Substance: PANTOPRAZOLE
  22. ASPIRIN [Concomitant]
     Active Substance: ASPIRIN
  23. CREXONT [Concomitant]
     Active Substance: CARBIDOPA\LEVODOPA
     Dosage: EACH DF OF 85/300 MG
  24. RASAGILINE [Concomitant]
     Active Substance: RASAGILINE

REACTIONS (19)
  - Skin irritation [Not Recovered/Not Resolved]
  - Eczema [Unknown]
  - Tremor [Unknown]
  - Dry mouth [Unknown]
  - Infusion site bruising [Recovered/Resolved]
  - Dysarthria [Recovered/Resolved]
  - Crying [Recovered/Resolved]
  - Feeling abnormal [Recovered/Resolved]
  - Motion sickness [Unknown]
  - Rash [Not Recovered/Not Resolved]
  - Nausea [Recovered/Resolved]
  - Insomnia [Recovered/Resolved]
  - Nausea [Recovered/Resolved]
  - Vomiting [Recovered/Resolved]
  - Confusional state [Recovered/Resolved]
  - Fall [Recovered/Resolved]
  - Product dose omission issue [Unknown]
  - Device issue [Unknown]
  - Device use error [Unknown]

NARRATIVE: CASE EVENT DATE: 20250601
